FAERS Safety Report 17019621 (Version 1)
Quarter: 2019Q4

REPORT INFORMATION
  Report Type: Other
  Country: GB (occurrence: GB)
  Receive Date: 20191112
  Receipt Date: 20191112
  Transmission Date: 20200122
  Serious: Yes (Other)
  Sender: FDA-Public Use
  Company Number: GB-EMCURE PHARMACEUTICALS LTD-2018-EPL-0497

PATIENT
  Age: 49 Year
  Sex: Female
  Weight: 58.96 kg

DRUGS (8)
  1. RIZATRIPTAN BENZOATE. [Suspect]
     Active Substance: RIZATRIPTAN BENZOATE
     Indication: MIGRAINE
     Dosage: 10 MILLIGRAM
     Route: 048
     Dates: start: 20180528, end: 20180528
  2. IBUPROFEN. [Concomitant]
     Active Substance: IBUPROFEN
  3. MAGNESIUM OXIDE, LIGHT [Concomitant]
  4. AMITRIPTYLINE [Concomitant]
     Active Substance: AMITRIPTYLINE
  5. RIBOFLAVIN [Concomitant]
     Active Substance: RIBOFLAVIN
  6. CERAZETTE                          /00754001/ [Concomitant]
     Active Substance: DESOGESTREL
  7. FROVATRIPTAN. [Concomitant]
     Active Substance: FROVATRIPTAN
  8. IBUPROFEN LYSINE. [Concomitant]
     Active Substance: IBUPROFEN LYSINE

REACTIONS (3)
  - Mood altered [Recovered/Resolved with Sequelae]
  - Anxiety [Recovered/Resolved with Sequelae]
  - Depression [Recovered/Resolved with Sequelae]

NARRATIVE: CASE EVENT DATE: 20180528
